FAERS Safety Report 10289966 (Version 1)
Quarter: 2014Q3

REPORT INFORMATION
  Report Type: Spontaneous
  Country: US (occurrence: US)
  Receive Date: 20140710
  Receipt Date: 20140710
  Transmission Date: 20150326
  Serious: No
  Sender: FDA-Public Use
  Company Number: US-BAYER-2014-103610

PATIENT
  Age: 76 Year
  Sex: Female
  Weight: 78 kg

DRUGS (2)
  1. CALCIUM +VIT D [Concomitant]
     Active Substance: CALCIUM\VITAMIN D
  2. ALEVE [Suspect]
     Active Substance: NAPROXEN SODIUM
     Indication: ARTHRITIS
     Dosage: 1 DF, Q4HR
     Route: 048
     Dates: start: 20140707, end: 20140708

REACTIONS (2)
  - Incorrect dose administered [Unknown]
  - Drug ineffective [Unknown]

NARRATIVE: CASE EVENT DATE: 20140707
